FAERS Safety Report 7806012-X (Version None)
Quarter: 2011Q4

REPORT INFORMATION
  Report Type: 
  Country: None (occurrence: None)
  Receive Date: 20111011
  Receipt Date: 20110930
  Transmission Date: 20120403
  Serious: Yes (Other)
  Sender: FDA-Public Use
  Company Number: PHEH2011US05709

PATIENT
  Age: 52 Year
  Sex: Female

DRUGS (4)
  1. GLEEVEC [Suspect]
     Dosage: 300 MG, QD
  2. GLEEVEC [Suspect]
     Dosage: 100 MG, QD
  3. GLEEVEC [Suspect]
     Dosage: 200 MG, QD
  4. GLEEVEC [Suspect]
     Dosage: 400 MG, QD

REACTIONS (4)
  - RASH [None]
  - MALAISE [None]
  - NEUTROPENIA [None]
  - TOXICITY TO VARIOUS AGENTS [None]
